FAERS Safety Report 6306550-5 (Version None)
Quarter: 2009Q3

REPORT INFORMATION
  Report Type: 
  Country: None (occurrence: None)
  Receive Date: 20090812
  Receipt Date: 20090804
  Transmission Date: 20100115
  Serious: Yes (Disabling, Other)
  Sender: FDA-Public Use
  Company Number: US-MERCK-0604USA03108

PATIENT
  Age: 77 Year
  Sex: Female
  Weight: 68 kg

DRUGS (6)
  1. FOSAMAX [Suspect]
     Indication: OSTEOPOROSIS
     Route: 048
     Dates: start: 19990401
  2. HYDROCHLOROTHIAZIDE [Concomitant]
     Route: 065
  3. MOBIC [Concomitant]
     Route: 065
  4. ULTRACET [Concomitant]
     Route: 065
  5. ENALAPRIL MALEATE AND HYDROCHLOROTHIAZIDE [Concomitant]
     Route: 065
  6. CALCIUM (UNSPECIFIED) [Concomitant]
     Route: 065

REACTIONS (20)
  - ANXIETY [None]
  - DEPRESSION [None]
  - FISTULA [None]
  - HYPERTENSION [None]
  - IMPAIRED HEALING [None]
  - LYMPHADENOPATHY [None]
  - MASTICATION DISORDER [None]
  - NON-HODGKIN'S LYMPHOMA [None]
  - ORAL DISCOMFORT [None]
  - ORAL DISORDER [None]
  - ORAL PAIN [None]
  - ORAL TORUS [None]
  - OSTEOMYELITIS [None]
  - OSTEONECROSIS [None]
  - PARAESTHESIA ORAL [None]
  - PERIODONTAL DISEASE [None]
  - RESORPTION BONE INCREASED [None]
  - SWELLING [None]
  - THERMAL BURN [None]
  - WEIGHT DECREASED [None]
